FAERS Safety Report 7067732-0 (Version None)
Quarter: 2010Q4

REPORT INFORMATION
  Report Type: 
  Country: None (occurrence: None)
  Receive Date: 20101028
  Receipt Date: 20101020
  Transmission Date: 20110411
  Serious: Yes (Hospitalization)
  Sender: FDA-Public Use
  Company Number: JP-NOVOPROD-316815

PATIENT
  Age: 73 Year
  Sex: Female

DRUGS (10)
  1. VICTOZA [Suspect]
     Indication: TYPE 2 DIABETES MELLITUS
     Dosage: 0.6 MG, QD
     Route: 058
     Dates: start: 20100902, end: 20101019
  2. ARICEPT [Suspect]
     Indication: PRODUCT USED FOR UNKNOWN INDICATION
     Dosage: 3 MG, QD
     Route: 048
     Dates: end: 20101019
  3. LIPITOR [Suspect]
     Indication: PRODUCT USED FOR UNKNOWN INDICATION
     Dosage: 10 MG, QD
     Route: 048
     Dates: end: 20101019
  4. ARTIST [Concomitant]
     Dosage: 50 MG, QD
     Route: 048
  5. TAKEPRON [Concomitant]
     Dosage: OD, 15 MG, QD
     Route: 048
  6. 8-HOUR BAYER [Concomitant]
     Dosage: 100 MG, QD
     Route: 048
  7. PLAVIX [Concomitant]
     Dosage: 75 MG, QD
     Route: 048
  8. LASIX [Concomitant]
     Dosage: 10 MG, QD
     Route: 048
  9. ALESION [Concomitant]
     Dosage: 10 MG, QD
     Route: 048
  10. MAGLAX [Concomitant]
     Dosage: 3 TAB, QD
     Route: 048

REACTIONS (1)
  - HEPATIC FUNCTION ABNORMAL [None]
